FAERS Safety Report 17086669 (Version 2)
Quarter: 2019Q4

REPORT INFORMATION
  Report Type: Report from Study
  Country: None (occurrence: FI)
  Receive Date: 20191128
  Receipt Date: 20191217
  Transmission Date: 20200122
  Serious: Yes (Other)
  Sender: FDA-Public Use
  Company Number: FI-ABBVIE-19K-055-3168092-00

PATIENT
  Age: 73 Year
  Sex: Female
  Weight: 75 kg

DRUGS (2)
  1. DUODOPA [Suspect]
     Active Substance: CARBIDOPA\LEVODOPA
     Indication: PARKINSON^S DISEASE
     Dosage: MORNING 9.0ML, CONTINUOUS INFUSION 2.9 ML, EXTRA DOSES 1.5 ML
     Route: 050
     Dates: start: 2013
  2. DUODOPA [Suspect]
     Active Substance: CARBIDOPA\LEVODOPA
     Route: 050

REACTIONS (15)
  - Speech disorder [Recovered/Resolved]
  - Device dislocation [Recovered/Resolved]
  - Wrong technique in device usage process [Recovered/Resolved]
  - Therapeutic product effect decreased [Unknown]
  - Gait inability [Recovered/Resolved]
  - Device alarm issue [Recovered/Resolved]
  - Device occlusion [Not Recovered/Not Resolved]
  - Device occlusion [Recovered/Resolved]
  - Device dislocation [Unknown]
  - Parkinson^s disease [Unknown]
  - Device connection issue [Recovered/Resolved]
  - Device dislocation [Recovered/Resolved]
  - Incorrect route of product administration [Recovered/Resolved]
  - Apathy [Recovered/Resolved]
  - Musculoskeletal stiffness [Recovered/Resolved]

NARRATIVE: CASE EVENT DATE: 2018
